FAERS Safety Report 20619930 (Version 1)
Quarter: 2022Q1

REPORT INFORMATION
  Report Type: Other
  Country: LU (occurrence: LU)
  Receive Date: 20220322
  Receipt Date: 20220322
  Transmission Date: 20220423
  Serious: Yes (Hospitalization)
  Sender: FDA-Public Use
  Company Number: None

PATIENT

DRUGS (4)
  1. DEXAMETHASONE [Suspect]
     Active Substance: DEXAMETHASONE
     Indication: Premedication
     Dosage: INFUSION IN 250 ML NACL 9%
     Route: 041
     Dates: start: 20220222, end: 20220222
  2. ELOXATIN [Suspect]
     Active Substance: OXALIPLATIN
     Indication: Colon cancer
     Dosage: 6TH COURSE
     Route: 041
     Dates: start: 20220222, end: 20220222
  3. ONDANSETRON [Suspect]
     Active Substance: ONDANSETRON
     Indication: Premedication
     Dosage: INFUSION IN 250 ML NACL 9%
     Route: 041
     Dates: start: 20220222, end: 20220222
  4. LEUCOVORIN [Suspect]
     Active Substance: LEUCOVORIN
     Indication: Colon cancer
     Dosage: INFUSION IN 250 ML G5%
     Route: 041
     Dates: start: 20220222, end: 20220222

REACTIONS (1)
  - Infusion related reaction [Recovering/Resolving]

NARRATIVE: CASE EVENT DATE: 20220222
